FAERS Safety Report 5890090-1 (Version None)
Quarter: 2008Q3

REPORT INFORMATION
  Report Type: 
  Country: None (occurrence: None)
  Receive Date: 20080919
  Receipt Date: 20080716
  Transmission Date: 20090109
  Serious: Yes (Hospitalization)
  Sender: FDA-Public Use
  Company Number: FR-B.I. PHARMACEUTICALS,INC./RIDGEFIELD-2008-BP-14535YA

PATIENT
  Age: 81 Year
  Sex: Male
  Weight: 65 kg

DRUGS (5)
  1. TAMSULOSIN HCL [Suspect]
     Indication: PROSTATIC ADENOMA
     Route: 048
     Dates: start: 20080502, end: 20080514
  2. FELODIPINE [Concomitant]
  3. CARDENSIEL [Concomitant]
  4. ASPIRIN [Concomitant]
  5. LODALES [Concomitant]

REACTIONS (2)
  - MALAISE [None]
  - ORTHOSTATIC HYPOTENSION [None]
